FAERS Safety Report 24164436 (Version 1)
Quarter: 2024Q3

REPORT INFORMATION
  Report Type: Spontaneous
  Country: GB (occurrence: GB)
  Receive Date: 20240801
  Receipt Date: 20240801
  Transmission Date: 20241016
  Serious: Yes (Other)
  Sender: SANDOZ
  Company Number: GB-009507513-2407GBR014413

PATIENT
  Age: 16 Year
  Sex: Female

DRUGS (18)
  1. APREPITANT [Suspect]
     Active Substance: APREPITANT
     Indication: Nausea
     Dosage: UNK
     Route: 048
     Dates: start: 20150119
  2. CLARITHROMYCIN [Suspect]
     Active Substance: CLARITHROMYCIN
     Indication: Product used for unknown indication
     Route: 065
  3. AMITRIPTYLINE [Concomitant]
     Active Substance: AMITRIPTYLINE
     Indication: Product used for unknown indication
     Route: 065
  4. As b [Concomitant]
     Indication: Product used for unknown indication
     Route: 065
  5. BR ITRACONAZOLE [Concomitant]
     Indication: Product used for unknown indication
     Route: 065
  6. CHLORIDE SODIUM [Concomitant]
     Indication: Product used for unknown indication
     Route: 065
  7. CM SALBUTAMOL [Concomitant]
     Indication: Product used for unknown indication
     Route: 065
  8. VITAMIN E\VITAMINS [Concomitant]
     Active Substance: .ALPHA.-TOCOPHEROL\VITAMINS
     Indication: Product used for unknown indication
     Route: 065
  9. GO SELENIUM [Concomitant]
     Indication: Product used for unknown indication
     Route: 065
  10. LOPERAMIDE [Concomitant]
     Active Substance: LOPERAMIDE
     Indication: Product used for unknown indication
     Route: 065
  11. MESALAMINE [Concomitant]
     Active Substance: MESALAMINE
     Indication: Product used for unknown indication
     Route: 065
  12. OMEPRAZOLE [Concomitant]
     Active Substance: OMEPRAZOLE
     Indication: Product used for unknown indication
     Route: 065
  13. RANITIDINE [Concomitant]
     Active Substance: RANITIDINE
     Indication: Product used for unknown indication
     Route: 065
  14. SALINE R [Concomitant]
     Indication: Product used for unknown indication
     Route: 065
  15. TERBINAFINE [Concomitant]
     Active Substance: TERBINAFINE
     Indication: Product used for unknown indication
     Route: 065
  16. CHOLECALCIFEROL [Interacting]
     Active Substance: CHOLECALCIFEROL
     Indication: Product used for unknown indication
     Route: 065
  17. CYCLIZINE [Interacting]
     Active Substance: CYCLIZINE
     Indication: Product used for unknown indication
     Route: 065
  18. DORNASE ALFA [Interacting]
     Active Substance: DORNASE ALFA
     Indication: Product used for unknown indication
     Route: 065

REACTIONS (3)
  - Drug interaction [Unknown]
  - Tachycardia [Unknown]
  - Off label use [Unknown]
